FAERS Safety Report 9236225 (Version 4)
Quarter: 2013Q3

REPORT INFORMATION
  Report Type: Spontaneous
  Country: FR (occurrence: FR)
  Receive Date: 20130417
  Receipt Date: 20130802
  Transmission Date: 20140515
  Serious: Yes (Hospitalization)
  Sender: FDA-Public Use
  Company Number: FR-PFIZER INC-2013116913

PATIENT
  Age: 58 Year
  Sex: Male

DRUGS (10)
  1. SOLU-MEDROL [Suspect]
     Dosage: 120 MG, CYCLIC
     Route: 042
     Dates: start: 20121122, end: 20121122
  2. FLUOROURACIL MYLAN [Suspect]
     Indication: ADENOCARCINOMA
     Dosage: 5050 MG, CYCLIC
     Route: 042
     Dates: start: 20121122, end: 20121122
  3. FLUOROURACIL MYLAN [Suspect]
     Indication: COLON CANCER
  4. IRINOTECAN MYLAN [Suspect]
     Indication: ADENOCARCINOMA
     Dosage: 320 MG, CYCLIC
     Route: 042
     Dates: start: 20121122, end: 20121122
  5. IRINOTECAN MYLAN [Suspect]
     Indication: COLON CANCER
  6. AVASTIN [Suspect]
     Indication: ADENOCARCINOMA
     Dosage: 500 MG, CYCLIC
     Route: 042
     Dates: start: 20121122, end: 20121122
  7. AVASTIN [Suspect]
     Indication: COLON CANCER
  8. ZOCOR [Concomitant]
     Dosage: 20 MG, 1X/DAY
  9. INEXIUM [Concomitant]
     Dosage: 40 MG
  10. METFORMIN [Concomitant]
     Dosage: 850 MG, 2X/DAY
     Route: 048

REACTIONS (2)
  - Dysphagia [Recovered/Resolved]
  - Oesophagitis [Recovered/Resolved]
